FAERS Safety Report 10226497 (Version 1)
Quarter: 2014Q2

REPORT INFORMATION
  Report Type: Spontaneous
  Country: US (occurrence: US)
  Receive Date: 20140609
  Receipt Date: 20140609
  Transmission Date: 20141212
  Serious: No
  Sender: FDA-Public Use
  Company Number: US-AMGEN INC.-USASP2014002382

PATIENT
  Age: 29 Year
  Sex: Female

DRUGS (3)
  1. EPOGEN [Suspect]
     Indication: NEPHROGENIC ANAEMIA
     Dosage: 14000 UNIT, QWK
     Route: 058
  2. VITAMIN D                          /00107901/ [Concomitant]
     Dosage: UNK
  3. SODIUM BICARBONATE [Concomitant]
     Dosage: UNK

REACTIONS (3)
  - Therapeutic response decreased [Unknown]
  - Haemoglobin decreased [Unknown]
  - Inflammation [Not Recovered/Not Resolved]
